FAERS Safety Report 9440188 (Version 3)
Quarter: 2013Q3

REPORT INFORMATION
  Report Type: Spontaneous
  Country: GB (occurrence: GB)
  Receive Date: 20130805
  Receipt Date: 20130904
  Transmission Date: 20140515
  Serious: Yes (Hospitalization, Other)
  Sender: FDA-Public Use
  Company Number: PHFR2013GB004406

PATIENT
  Age: 49 Year
  Sex: Male
  Weight: 63.5 kg

DRUGS (8)
  1. OXCARBAZEPINE [Suspect]
     Indication: EPILEPSY
     Dosage: 200 MG TO 400 MG (UNK DOSE)
  2. OXCARBAZEPINE [Suspect]
     Dosage: 600 MG, TWICE DAILY (1200 MG DAILY)
  3. OXCARBAZEPINE [Suspect]
     Dosage: 300 MG, TWICE DAILY
  4. LEVETIRACETAM [Concomitant]
     Dosage: 250 MG, BID
  5. VITAMIN B [Concomitant]
     Dosage: 2 DF, BID
  6. OXYTETRACYCLINE [Concomitant]
     Dosage: 250 MG, BID
  7. CHLORAMPHENICOL [Concomitant]
     Dosage: 1 %, UNK
     Route: 047
  8. PHENYTOIN [Concomitant]
     Dosage: 100 MG, BID
     Route: 048

REACTIONS (6)
  - Abnormal behaviour [Recovered/Resolved]
  - Muscle spasms [Recovered/Resolved]
  - Lower respiratory tract infection [Unknown]
  - Hallucination [Recovered/Resolved]
  - Delusion [Recovered/Resolved]
  - Convulsion [Unknown]
